FAERS Safety Report 5260318-X (Version None)
Quarter: 2007Q1

REPORT INFORMATION
  Report Type: 
  Country: None (occurrence: None)
  Receive Date: 20070309
  Receipt Date: 20060711
  Transmission Date: 20070707
  Serious: No
  Sender: FDA-Public Use
  Company Number: US-GLAXOSMITHKLINE-A0611562A

PATIENT
  Age: 33 Year
  Sex: Male

DRUGS (1)
  1. NICORETTE [Suspect]

REACTIONS (4)
  - DISCOMFORT [None]
  - FEELING ABNORMAL [None]
  - HEART RATE INCREASED [None]
  - NERVOUSNESS [None]
